FAERS Safety Report 21155285 (Version 1)
Quarter: 2022Q3

REPORT INFORMATION
  Report Type: 
  Country: None (occurrence: None)
  Receive Date: 20220801
  Receipt Date: 20220801
  Transmission Date: 20221026
  Serious: Yes (Other)
  Sender: FDA-Public Use
  Company Number: None

PATIENT
  Age: 14 Year
  Sex: Female

DRUGS (1)
  1. MYORISAN [Suspect]
     Active Substance: ISOTRETINOIN

REACTIONS (4)
  - Swelling face [Recovered/Resolved]
  - Arthralgia [Recovered/Resolved]
  - Mood altered [Recovered/Resolved]
  - Depressed mood [Recovered/Resolved]
